FAERS Safety Report 15953285 (Version 2)
Quarter: 2019Q1

REPORT INFORMATION
  Report Type: Spontaneous
  Country: US (occurrence: US)
  Receive Date: 20190211
  Receipt Date: 20190220
  Transmission Date: 20190417
  Serious: Yes (Hospitalization, Other)
  Sender: FDA-Public Use
  Company Number: US-APOTEX-2019AP007678

PATIENT
  Sex: Female

DRUGS (4)
  1. QUETIAPINE. [Suspect]
     Active Substance: QUETIAPINE
     Indication: PRODUCT USED FOR UNKNOWN INDICATION
     Dosage: UNK
     Route: 064
  2. ACETAMINOPHEN. [Suspect]
     Active Substance: ACETAMINOPHEN
     Indication: PRODUCT USED FOR UNKNOWN INDICATION
     Route: 064
  3. TYLENOL [Suspect]
     Active Substance: ACETAMINOPHEN
     Indication: PRODUCT USED FOR UNKNOWN INDICATION
     Dosage: UNK
     Route: 064
  4. ASPIRIN                            /00002701/ [Suspect]
     Active Substance: ASPIRIN
     Indication: PRODUCT USED FOR UNKNOWN INDICATION
     Dosage: UNK
     Route: 064

REACTIONS (6)
  - Toxicity to various agents [Recovered/Resolved]
  - Foetal exposure during pregnancy [Unknown]
  - Premature baby [Unknown]
  - Coagulopathy [Recovering/Resolving]
  - Drug level above therapeutic [Recovering/Resolving]
  - Bradycardia foetal [Unknown]
